FAERS Safety Report 20417302 (Version 4)
Quarter: 2022Q2

REPORT INFORMATION
  Report Type: Report from Study
  Country: US (occurrence: US)
  Receive Date: 20220202
  Receipt Date: 20220410
  Transmission Date: 20220721
  Serious: Yes (Other)
  Sender: FDA-Public Use
  Company Number: US-BIOGEN-2021BI01081771

PATIENT
  Age: 46 Year
  Sex: Female

DRUGS (9)
  1. VUMERITY [Suspect]
     Active Substance: DIROXIMEL FUMARATE
     Indication: Multiple sclerosis
     Dosage: FOR 1 WEEK
     Route: 048
     Dates: start: 20211226, end: 20220101
  2. VUMERITY [Suspect]
     Active Substance: DIROXIMEL FUMARATE
     Route: 048
     Dates: start: 20220102
  3. VUMERITY [Suspect]
     Active Substance: DIROXIMEL FUMARATE
     Route: 048
  4. VUMERITY [Suspect]
     Active Substance: DIROXIMEL FUMARATE
     Route: 065
     Dates: start: 20211222
  5. VUMERITY [Suspect]
     Active Substance: DIROXIMEL FUMARATE
     Dosage: MAINTENANCE DOSE.
     Route: 048
  6. VUMERITY [Suspect]
     Active Substance: DIROXIMEL FUMARATE
     Dosage: FOR 1 WEEK
     Route: 048
  7. VUMERITY [Suspect]
     Active Substance: DIROXIMEL FUMARATE
     Route: 048
     Dates: start: 20211226
  8. TYLENOL [Concomitant]
     Active Substance: ACETAMINOPHEN
     Indication: Product used for unknown indication
     Route: 065
  9. IBUPROFEN [Concomitant]
     Active Substance: IBUPROFEN
     Indication: Product used for unknown indication
     Route: 065

REACTIONS (28)
  - Hepatomegaly [Not Recovered/Not Resolved]
  - Drug ineffective [Unknown]
  - Tooth discolouration [Not Recovered/Not Resolved]
  - Ocular icterus [Not Recovered/Not Resolved]
  - Weight increased [Not Recovered/Not Resolved]
  - Tearfulness [Not Recovered/Not Resolved]
  - COVID-19 [Not Recovered/Not Resolved]
  - Facial pain [Not Recovered/Not Resolved]
  - Tongue movement disturbance [Unknown]
  - Gastric disorder [Recovered/Resolved]
  - Discomfort [Unknown]
  - Asthenia [Not Recovered/Not Resolved]
  - Vitamin D decreased [Not Recovered/Not Resolved]
  - Hypoaesthesia oral [Not Recovered/Not Resolved]
  - Dysarthria [Not Recovered/Not Resolved]
  - Hemihypoaesthesia [Not Recovered/Not Resolved]
  - Presyncope [Not Recovered/Not Resolved]
  - Constipation [Recovered/Resolved]
  - Headache [Not Recovered/Not Resolved]
  - Gastritis [Not Recovered/Not Resolved]
  - Urinary retention [Not Recovered/Not Resolved]
  - Burning sensation [Not Recovered/Not Resolved]
  - Rash papular [Not Recovered/Not Resolved]
  - Feeling hot [Not Recovered/Not Resolved]
  - Flushing [Unknown]
  - Pruritus [Recovered/Resolved]
  - Erythema [Recovered/Resolved]
  - Diarrhoea [Unknown]

NARRATIVE: CASE EVENT DATE: 20211226
